FAERS Safety Report 24526776 (Version 1)
Quarter: 2024Q4

REPORT INFORMATION
  Report Type: Report from Study
  Country: EC (occurrence: EC)
  Receive Date: 20241021
  Receipt Date: 20241021
  Transmission Date: 20250114
  Serious: No
  Sender: ROCHE
  Company Number: EC-ROCHE-3508068

PATIENT
  Age: 74 Year
  Sex: Male

DRUGS (7)
  1. ZELBORAF [Suspect]
     Active Substance: VEMURAFENIB
     Indication: Metastatic malignant melanoma
     Dosage: 2 TABLETS, ONE AT 7AM AND ONE AT 7PM
     Route: 065
     Dates: start: 20240116
  2. COTELLIC [Suspect]
     Active Substance: COBIMETINIB
     Indication: Metastatic malignant melanoma
     Dosage: 3 TABLETS, AT 9:30AM
     Route: 065
     Dates: start: 20240125
  3. LOSARTAN [Concomitant]
     Active Substance: LOSARTAN
     Indication: Blood pressure measurement
  4. CARVEDILOL [Concomitant]
     Active Substance: CARVEDILOL
     Indication: Blood pressure measurement
     Dosage: DOSE AND FREQUENCY WERE NOT REPORTED
  5. CLOPIDOGREL [Concomitant]
     Active Substance: CLOPIDOGREL BISULFATE
     Indication: Blood pressure measurement
  6. DOXAZOSIN [Concomitant]
     Active Substance: DOXAZOSIN\DOXAZOSIN MESYLATE
  7. SIMVASTATIN [Concomitant]
     Active Substance: SIMVASTATIN
     Indication: Blood cholesterol

REACTIONS (2)
  - Abdominal pain upper [Not Recovered/Not Resolved]
  - Acne [Not Recovered/Not Resolved]
